FAERS Safety Report 6713421-9 (Version None)
Quarter: 2010Q2

REPORT INFORMATION
  Report Type: 
  Country: None (occurrence: None)
  Receive Date: 20100506
  Receipt Date: 20100423
  Transmission Date: 20101027
  Serious: Yes (Hospitalization)
  Sender: FDA-Public Use
  Company Number: US-ROCHE-700983

PATIENT
  Age: 85 Year
  Sex: Male
  Weight: 69.5 kg

DRUGS (9)
  1. BONIVA [Suspect]
     Indication: OSTEOPOROSIS
     Route: 048
     Dates: start: 20080101
  2. JANUVIA [Concomitant]
  3. NAMENDA [Concomitant]
  4. LASIX [Concomitant]
     Dosage: DRUG: LASIX PRN
  5. CALTRATE [Concomitant]
  6. CENTRUM SILVER [Concomitant]
  7. VITAMIN C [Concomitant]
  8. GLUCOSAMINE SULFATE/CHONDROITIN [Concomitant]
  9. MAGNESIUM [Concomitant]

REACTIONS (1)
  - PNEUMONIA ASPIRATION [None]
